FAERS Safety Report 19784161 (Version 1)
Quarter: 2021Q3

REPORT INFORMATION
  Report Type: Spontaneous
  Country: CA (occurrence: CA)
  Receive Date: 20210903
  Receipt Date: 20210903
  Transmission Date: 20211014
  Serious: Yes (Other)
  Sender: FDA-Public Use
  Company Number: CA-ROCHE-2901326

PATIENT
  Sex: Male

DRUGS (24)
  1. MYCOPHENOLATE MOFETIL. [Suspect]
     Active Substance: MYCOPHENOLATE MOFETIL
     Indication: PEMPHIGUS
     Route: 048
  2. EMPAGLIFLOZIN [Concomitant]
     Active Substance: EMPAGLIFLOZIN
     Route: 065
  3. MYCOPHENOLATE SODIUM [Concomitant]
     Active Substance: MYCOPHENOLATE SODIUM
     Route: 065
  4. PREDNISONE. [Suspect]
     Active Substance: PREDNISONE
     Indication: PRODUCT USED FOR UNKNOWN INDICATION
     Route: 065
  5. ERGOCALCIFEROL. [Concomitant]
     Active Substance: ERGOCALCIFEROL
     Route: 048
  6. VITAMIN D3 [Concomitant]
     Active Substance: CHOLECALCIFEROL
     Route: 065
  7. BETAMETHASONE. [Concomitant]
     Active Substance: BETAMETHASONE
     Route: 065
  8. IMMUNOGLOBULIN HUMAN NORMAL [Concomitant]
     Active Substance: HUMAN IMMUNOGLOBULIN G
     Route: 042
  9. METFORMIN [Concomitant]
     Active Substance: METFORMIN HYDROCHLORIDE
  10. PREGABALIN. [Concomitant]
     Active Substance: PREGABALIN
     Route: 065
  11. TRIMETHOPRIM. [Concomitant]
     Active Substance: TRIMETHOPRIM
     Route: 065
  12. TYLENOL [Concomitant]
     Active Substance: ACETAMINOPHEN
     Route: 048
  13. HYDROMORPHONE [Concomitant]
     Active Substance: HYDROMORPHONE
     Route: 065
  14. NOVORAPID [Concomitant]
     Active Substance: INSULIN ASPART
     Dosage: SOLUTION?SUBCUTANEOUS
     Route: 058
  15. ACETAMINOPHEN. [Concomitant]
     Active Substance: ACETAMINOPHEN
  16. BENADRYL [Concomitant]
     Active Substance: DIPHENHYDRAMINE HYDROCHLORIDE
     Indication: PREMEDICATION
     Route: 048
  17. CETOMACROGOL 1000;CETOSTEARYL ALCOHOL;CHLOROCRESOL;PARAFFIN;PETROLATUM [Concomitant]
     Route: 065
  18. METHYLPREDNISOLONE SODIUM SUCCINATE. [Concomitant]
     Active Substance: METHYLPREDNISOLONE SODIUM SUCCINATE
     Route: 042
  19. SYNJARDY [Concomitant]
     Active Substance: EMPAGLIFLOZIN\METFORMIN HYDROCHLORIDE
  20. RITUXIMAB. [Suspect]
     Active Substance: RITUXIMAB
     Indication: PEMPHIGUS
     Route: 042
  21. FLUOCINONIDE. [Concomitant]
     Active Substance: FLUOCINONIDE
     Route: 065
  22. LYRICA [Concomitant]
     Active Substance: PREGABALIN
     Route: 065
  23. CEFTAZIDIME. [Concomitant]
     Active Substance: CEFTAZIDIME
     Dosage: POWDER FOR?SOLUTION
     Route: 065
  24. METHYLPREDNISOLONE SODIUM SUCCINATE. [Concomitant]
     Active Substance: METHYLPREDNISOLONE SODIUM SUCCINATE
     Route: 042

REACTIONS (5)
  - Off label use [Unknown]
  - Dry eye [Not Recovered/Not Resolved]
  - Intentional product use issue [Unknown]
  - Blood glucose increased [Not Recovered/Not Resolved]
  - Blood cholesterol abnormal [Not Recovered/Not Resolved]
